FAERS Safety Report 10892015 (Version 1)
Quarter: 2015Q1

REPORT INFORMATION
  Report Type: Spontaneous
  Country: US (occurrence: US)
  Receive Date: 20150306
  Receipt Date: 20150306
  Transmission Date: 20150721
  Serious: Yes (Other)
  Sender: FDA-Public Use
  Company Number: US-JNJFOC-20150218105

PATIENT
  Sex: Male

DRUGS (1)
  1. RISPERDAL [Suspect]
     Active Substance: RISPERIDONE
     Indication: PRODUCT USED FOR UNKNOWN INDICATION
     Route: 065

REACTIONS (5)
  - Adverse drug reaction [Recovered/Resolved]
  - Adverse event [Recovered/Resolved]
  - Bedridden [Recovered/Resolved]
  - Sexual dysfunction [Recovered/Resolved]
  - Eye disorder [Recovered/Resolved]
